FAERS Safety Report 21036832 (Version 2)
Quarter: 2022Q3

REPORT INFORMATION
  Report Type: Report from Study
  Country: US (occurrence: US)
  Receive Date: 20220702
  Receipt Date: 20220802
  Transmission Date: 20221026
  Serious: Yes (Other)
  Sender: FDA-Public Use
  Company Number: US-TAKEDA-2022TUS043028

PATIENT
  Age: 8 Year
  Sex: Female
  Weight: 53 kg

DRUGS (58)
  1. TEDUGLUTIDE [Suspect]
     Active Substance: TEDUGLUTIDE
     Indication: Short-bowel syndrome
     Dosage: UNK
     Route: 042
  2. TEDUGLUTIDE [Suspect]
     Active Substance: TEDUGLUTIDE
     Indication: Short-bowel syndrome
     Dosage: UNK
     Route: 042
  3. TEDUGLUTIDE [Suspect]
     Active Substance: TEDUGLUTIDE
     Indication: Short-bowel syndrome
     Dosage: UNK
     Route: 042
  4. TEDUGLUTIDE [Suspect]
     Active Substance: TEDUGLUTIDE
     Indication: Short-bowel syndrome
     Dosage: UNK
     Route: 042
  5. PIPERACILLIN AND TAZOBACTAM [Concomitant]
     Active Substance: PIPERACILLIN SODIUM\TAZOBACTAM SODIUM
     Indication: Sepsis
     Dosage: 1500 MILLIGRAM, TID
     Route: 042
     Dates: start: 20190919, end: 20190921
  6. PIPERACILLIN AND TAZOBACTAM [Concomitant]
     Active Substance: PIPERACILLIN SODIUM\TAZOBACTAM SODIUM
     Indication: Pyrexia
     Dosage: 1680 MILLIGRAM, QID
     Route: 042
     Dates: start: 20200714, end: 20200721
  7. PIPERACILLIN AND TAZOBACTAM [Concomitant]
     Active Substance: PIPERACILLIN SODIUM\TAZOBACTAM SODIUM
     Indication: Short-bowel syndrome
     Dosage: 3000 MILLIGRAM, QID
     Route: 042
     Dates: start: 20200714, end: 20200721
  8. PIPERACILLIN AND TAZOBACTAM [Concomitant]
     Active Substance: PIPERACILLIN SODIUM\TAZOBACTAM SODIUM
     Dosage: 2040 MILLIGRAM, TID
     Route: 042
     Dates: start: 20220126, end: 20220127
  9. PIPERACILLIN AND TAZOBACTAM [Concomitant]
     Active Substance: PIPERACILLIN SODIUM\TAZOBACTAM SODIUM
     Dosage: 2100 MILLIGRAM, QID
     Route: 042
     Dates: start: 20220504, end: 20220506
  10. VANCOMYCIN [Concomitant]
     Active Substance: VANCOMYCIN
     Indication: Sepsis
     Dosage: 275 MILLIGRAM, TID
     Route: 042
     Dates: start: 20190919, end: 20190922
  11. VANCOMYCIN [Concomitant]
     Active Substance: VANCOMYCIN
     Indication: Lactic acidosis
     Dosage: 265 MILLIGRAM
     Route: 042
     Dates: start: 20191209, end: 20191211
  12. VANCOMYCIN [Concomitant]
     Active Substance: VANCOMYCIN
     Indication: Device related infection
     Dosage: 200 MILLIGRAM, BID
     Route: 050
     Dates: start: 20191209, end: 20191211
  13. VANCOMYCIN [Concomitant]
     Active Substance: VANCOMYCIN
     Indication: Short-bowel syndrome
     Dosage: 4 MILLILITER
     Route: 050
     Dates: start: 20200205, end: 20201021
  14. VANCOMYCIN [Concomitant]
     Active Substance: VANCOMYCIN
     Dosage: 270 MILLIGRAM, TID
     Route: 042
     Dates: start: 20200924, end: 20200928
  15. VANCOMYCIN [Concomitant]
     Active Substance: VANCOMYCIN
     Dosage: 315 MILLIGRAM, TID
     Route: 042
     Dates: start: 20220302, end: 20220303
  16. VANCOMYCIN [Concomitant]
     Active Substance: VANCOMYCIN
     Dosage: 200 MILLIGRAM, BID
     Route: 050
     Dates: start: 20220413, end: 20220414
  17. VANCOMYCIN [Concomitant]
     Active Substance: VANCOMYCIN
     Dosage: 310 MILLIGRAM, TID
     Route: 042
     Dates: start: 20220125, end: 20220127
  18. VANCOMYCIN [Concomitant]
     Active Substance: VANCOMYCIN
     Dosage: 310 MILLIGRAM, TID
     Route: 042
     Dates: start: 20220504, end: 20220506
  19. METRONIDAZOLE [Concomitant]
     Active Substance: METRONIDAZOLE
     Indication: Gastrointestinal bacterial overgrowth
     Dosage: 140 MILLIGRAM, BID
     Route: 048
     Dates: start: 20190923, end: 20190925
  20. ONDANSETRON [Concomitant]
     Active Substance: ONDANSETRON
     Indication: Nausea
     Dosage: 2 MILLIGRAM, BID
     Route: 048
     Dates: start: 20190919, end: 20190925
  21. ONDANSETRON [Concomitant]
     Active Substance: ONDANSETRON
     Indication: Vomiting
     Dosage: 2 MILLIGRAM, BID
     Route: 048
     Dates: start: 20191209, end: 20191211
  22. ONDANSETRON [Concomitant]
     Active Substance: ONDANSETRON
     Dosage: 2.5 MILLILITER
     Route: 048
     Dates: start: 20200115
  23. ONDANSETRON [Concomitant]
     Active Substance: ONDANSETRON
     Dosage: 2.6 MILLIGRAM
     Route: 042
     Dates: start: 20200714, end: 20200721
  24. ONDANSETRON [Concomitant]
     Active Substance: ONDANSETRON
     Dosage: 4 MILLIGRAM
     Route: 048
     Dates: start: 20220504, end: 20220504
  25. CITRIC ACID MONOHYDRATE\SODIUM CITRATE [Concomitant]
     Active Substance: CITRIC ACID MONOHYDRATE\SODIUM CITRATE
     Indication: Laxative supportive care
     Dosage: 15 MILLILITER, TID
     Route: 050
     Dates: start: 20190919, end: 20190925
  26. CEFEPIME [Concomitant]
     Active Substance: CEFEPIME HYDROCHLORIDE
     Indication: Sepsis
     Dosage: 880 MILLIGRAM
     Route: 042
     Dates: start: 20191209, end: 20191211
  27. CEFEPIME [Concomitant]
     Active Substance: CEFEPIME HYDROCHLORIDE
     Dosage: 900 MILLIGRAM
     Route: 042
     Dates: start: 20200924, end: 20200924
  28. FERINSOL [Concomitant]
     Indication: Anaemia
     Dosage: 25 MILLIGRAM, BID
     Dates: start: 20191209, end: 20191211
  29. FERINSOL [Concomitant]
     Dosage: 1.7 MILLILITER
     Route: 048
     Dates: start: 20200117
  30. FERINSOL [Concomitant]
     Dosage: 25 MILLIGRAM, BID
     Route: 048
     Dates: start: 20220413, end: 20220414
  31. ERYPED [Concomitant]
     Active Substance: ERYTHROMYCIN ETHYLSUCCINATE
     Indication: Impaired gastric emptying
     Dosage: 2.3 MILLILITER, QID
     Route: 048
     Dates: start: 20200115, end: 20210728
  32. CETIRIZINE [Concomitant]
     Active Substance: CETIRIZINE HYDROCHLORIDE
     Indication: Multiple allergies
     Dosage: 5 MILLILITER
     Route: 050
     Dates: start: 20191125
  33. CETIRIZINE [Concomitant]
     Active Substance: CETIRIZINE HYDROCHLORIDE
     Indication: Rhinitis
  34. SODIUM CITRATE [Concomitant]
     Active Substance: SODIUM CITRATE
     Dosage: 15 MILLILITER, TID
     Route: 050
     Dates: start: 20200205, end: 20210928
  35. SODIUM CITRATE [Concomitant]
     Active Substance: SODIUM CITRATE
     Dosage: 16.5 MILLILITER, TID
     Route: 050
     Dates: start: 20210601
  36. SODIUM CITRATE [Concomitant]
     Active Substance: SODIUM CITRATE
     Dosage: 16.5 MILLILITER
     Route: 050
     Dates: start: 20220413, end: 20220414
  37. SODIUM CITRATE [Concomitant]
     Active Substance: SODIUM CITRATE
     Dosage: 15 MILLILITER, TID
     Route: 050
     Dates: start: 20200205, end: 20210928
  38. NEXIUM [Concomitant]
     Active Substance: ESOMEPRAZOLE MAGNESIUM
     Indication: Gastrooesophageal reflux disease
     Dosage: 5 MILLIGRAM, QD
     Route: 050
     Dates: start: 20200205, end: 20210728
  39. IBUPROFEN [Concomitant]
     Active Substance: IBUPROFEN
     Indication: Pain
     Dosage: 7.7 MILLILITER
     Route: 050
     Dates: start: 20200205
  40. IBUPROFEN [Concomitant]
     Active Substance: IBUPROFEN
     Indication: Pyrexia
     Dosage: 200 MILLIGRAM
     Route: 050
     Dates: start: 20220125, end: 20220125
  41. BANOPHEN [Concomitant]
     Active Substance: DIPHENHYDRAMINE HYDROCHLORIDE
     Indication: Multiple allergies
     Dosage: 3.1 MILLILITER
     Route: 050
     Dates: start: 20171220
  42. MAPAP [Concomitant]
     Active Substance: ACETAMINOPHEN
     Indication: Pain
     Dosage: 7.2 MILLILITER
     Route: 050
  43. MAPAP [Concomitant]
     Active Substance: ACETAMINOPHEN
     Indication: Pyrexia
  44. ACETAMINOPHEN [Concomitant]
     Active Substance: ACETAMINOPHEN
     Indication: Pain
     Dosage: 250 MILLIGRAM
     Route: 042
     Dates: start: 20200714, end: 20200721
  45. ACETAMINOPHEN [Concomitant]
     Active Substance: ACETAMINOPHEN
     Indication: Pyrexia
     Dosage: 240 MILLIGRAM
     Route: 050
     Dates: start: 20200924, end: 20200924
  46. LANSOPRAZOLE [Concomitant]
     Active Substance: LANSOPRAZOLE
     Dosage: 15 MILLIGRAM, QD
     Route: 048
     Dates: start: 20200720, end: 20200721
  47. ALTEPLASE [Concomitant]
     Active Substance: ALTEPLASE
     Dosage: 1 MILLIGRAM
     Route: 050
     Dates: start: 20200830, end: 20200830
  48. CEFTRIAXONE [Concomitant]
     Active Substance: CEFTRIAXONE
     Indication: Bacteraemia
     Dosage: 1000 MILLIGRAM, QD
     Route: 042
     Dates: start: 20200925, end: 20201005
  49. CEFTRIAXONE [Concomitant]
     Active Substance: CEFTRIAXONE
     Dosage: 1040 MILLIGRAM, QD
     Route: 042
     Dates: start: 20220301, end: 20220307
  50. CEFTRIAXONE [Concomitant]
     Active Substance: CEFTRIAXONE
     Dosage: 1040 MILLIGRAM
     Route: 042
     Dates: start: 20220504, end: 20220504
  51. CYPROHEPTADINE HYDROCHLORIDE [Concomitant]
     Active Substance: CYPROHEPTADINE HYDROCHLORIDE
     Dosage: 7.5 MILLILITER
     Route: 050
     Dates: start: 20211020
  52. CYPROHEPTADINE HYDROCHLORIDE [Concomitant]
     Active Substance: CYPROHEPTADINE HYDROCHLORIDE
     Dosage: 3 MILLIGRAM
     Route: 050
     Dates: start: 20220413, end: 20220414
  53. ZOSYN [Concomitant]
     Active Substance: PIPERACILLIN SODIUM\TAZOBACTAM SODIUM
     Indication: Abdominal infection
     Dosage: 2100 MILLIGRAM, QID
     Route: 042
     Dates: start: 20220302, end: 20220303
  54. LORAZEPAM [Concomitant]
     Active Substance: LORAZEPAM
     Dosage: 1 MILLIGRAM
     Route: 042
     Dates: start: 20220125, end: 20220125
  55. LORAZEPAM [Concomitant]
     Active Substance: LORAZEPAM
     Dosage: 1 MILLILITER
     Route: 042
     Dates: start: 20220504, end: 20220504
  56. FERROUS SULFATE [Concomitant]
     Active Substance: FERROUS SULFATE
     Dosage: 1.7 MILLILITER, BID
     Route: 048
     Dates: start: 20220127, end: 20220127
  57. SODIUM CHLORIDE [Concomitant]
     Active Substance: SODIUM CHLORIDE
     Dosage: 0.5 MILLILITER
     Route: 042
     Dates: start: 20220504, end: 20220504
  58. HEPARIN [Concomitant]
     Active Substance: HEPARIN SODIUM
     Indication: Catheter management
     Dosage: 500 INTERNATIONAL UNIT
     Route: 042
     Dates: start: 20220602, end: 20220602

REACTIONS (1)
  - Complication associated with device [Recovered/Resolved]

NARRATIVE: CASE EVENT DATE: 20220602
